FAERS Safety Report 7317126-5 (Version None)
Quarter: 2011Q1

REPORT INFORMATION
  Report Type: 
  Country: None (occurrence: None)
  Receive Date: 20110226
  Receipt Date: 20100928
  Transmission Date: 20110831
  Serious: No
  Sender: FDA-Public Use
  Company Number: US-ALLERGAN-1012517US

PATIENT
  Age: 38 Year
  Sex: Female

DRUGS (1)
  1. BOTOXA? [Suspect]
     Indication: HEADACHE
     Dosage: 200 UNITS, SINGLE
     Route: 030
     Dates: start: 20100922, end: 20100922

REACTIONS (2)
  - MIGRAINE [None]
  - MUSCLE SPASMS [None]
